FAERS Safety Report 10936693 (Version 1)
Quarter: 2015Q1

REPORT INFORMATION
  Report Type: Spontaneous
  Country: US (occurrence: None)
  Receive Date: 20150320
  Receipt Date: 20150320
  Transmission Date: 20150721
  Serious: Yes (Other)
  Sender: FDA-Public Use
  Company Number: None

PATIENT
  Age: 39 Year
  Sex: Female

DRUGS (1)
  1. ENBREL [Suspect]
     Active Substance: ETANERCEPT
     Dosage: INJECTABLE
     Route: 058
     Dates: start: 20140513

REACTIONS (2)
  - Synovial cyst [None]
  - Rheumatoid arthritis [None]

NARRATIVE: CASE EVENT DATE: 20150318
